FAERS Safety Report 5663693-7 (Version None)
Quarter: 2008Q1

REPORT INFORMATION
  Report Type: 
  Country: None (occurrence: None)
  Receive Date: 20080307
  Receipt Date: 20080222
  Transmission Date: 20080703
  Serious: Yes (Death, Life-Threatening, Hospitalization, Other)
  Sender: FDA-Public Use
  Company Number: 2007P1000332

PATIENT
  Age: 31 Year
  Sex: Male

DRUGS (6)
  1. BUSULFAN (BUSULFAN) [Suspect]
     Indication: STEM CELL TRANSPLANT
     Dosage: 34.0 ML;QD;IV
     Route: 042
     Dates: start: 20070419, end: 20070422
  2. TACROLIMUS HYDRATE (NO PREF. NAME) [Suspect]
  3. CYCLOPHOSPHAMIDE [Concomitant]
  4. PHENYTOIN [Concomitant]
  5. FILGRASTIM [Concomitant]
  6. METHOTREXATE [Concomitant]

REACTIONS (11)
  - ACUTE GRAFT VERSUS HOST DISEASE [None]
  - ADENOVIRAL HAEMORRHAGIC CYSTITIS [None]
  - BACTERIAL INFECTION [None]
  - BONE MARROW TRANSPLANT [None]
  - COMPLICATIONS OF TRANSPLANT SURGERY [None]
  - CYTOMEGALOVIRUS ANTIGEN POSITIVE [None]
  - RENAL FAILURE [None]
  - STAPHYLOCOCCAL SEPSIS [None]
  - STOMATITIS [None]
  - THROMBOTIC MICROANGIOPATHY [None]
  - VIRAEMIA [None]
